FAERS Safety Report 19919403 (Version 5)
Quarter: 2022Q1

REPORT INFORMATION
  Report Type: Report from Study
  Country: US (occurrence: US)
  Receive Date: 20211005
  Receipt Date: 20220301
  Transmission Date: 20220423
  Serious: Yes (Other)
  Sender: FDA-Public Use
  Company Number: US-GLAXOSMITHKLINE-US2021AMR191213

PATIENT
  Sex: Male

DRUGS (1)
  1. BELANTAMAB MAFODOTIN [Suspect]
     Active Substance: BELANTAMAB MAFODOTIN
     Indication: Product used for unknown indication
     Dosage: 300 MG, QD
     Dates: start: 20210817

REACTIONS (6)
  - Punctate keratitis [Unknown]
  - Corneal dystrophy [Unknown]
  - Corneal opacity [Unknown]
  - Keratopathy [Unknown]
  - Visual acuity reduced [Recovered/Resolved]
  - Corneal disorder [Unknown]
